FAERS Safety Report 26117068 (Version 1)
Quarter: 2025Q4

REPORT INFORMATION
  Report Type: Spontaneous
  Country: US (occurrence: None)
  Receive Date: 20251202
  Receipt Date: 20251202
  Transmission Date: 20260117
  Serious: Yes (Hospitalization, Other)
  Sender: FDA-CTU
  Company Number: None

PATIENT
  Age: 44 Year
  Sex: Female
  Weight: 59.4 kg

DRUGS (3)
  1. BUPIVACAINE [Suspect]
     Active Substance: BUPIVACAINE
     Indication: Diagnostic procedure
     Route: 058
     Dates: start: 20250501
  2. BUPIVACAINE [Suspect]
     Active Substance: BUPIVACAINE
     Indication: Thoracic outlet syndrome
  3. GLUCOSAMINE [Concomitant]
     Active Substance: GLUCOSAMINE

REACTIONS (11)
  - Documented hypersensitivity to administered product [None]
  - Bradycardia [None]
  - Orthostatic hypotension [None]
  - Piloerection [None]
  - Nausea [None]
  - Dizziness [None]
  - Presyncope [None]
  - Chest pain [None]
  - Autonomic nervous system imbalance [None]
  - Antiacetylcholine receptor antibody positive [None]
  - Autonomic nervous system imbalance [None]

NARRATIVE: CASE EVENT DATE: 20250501
